FAERS Safety Report 5523251-1 (Version None)
Quarter: 2007Q4

REPORT INFORMATION
  Report Type: 
  Country: None (occurrence: None)
  Receive Date: 20071119
  Receipt Date: 20071119
  Transmission Date: 20080405
  Serious: Yes (Other)
  Sender: FDA-Public Use
  Company Number: None

PATIENT
  Age: 23 Year
  Sex: Female
  Weight: 90.7194 kg

DRUGS (1)
  1. VISINE-A [Suspect]
     Indication: EYE PRURITUS
     Dosage: 2 DROPS 4 TIMES DAILY OPHTHALMIC; ONLY ONE TIME USE
     Route: 047
     Dates: start: 20071114, end: 20071114

REACTIONS (5)
  - APPLICATION SITE REACTION [None]
  - EYE IRRITATION [None]
  - EYE SWELLING [None]
  - OCULAR HYPERAEMIA [None]
  - VISION BLURRED [None]
